FAERS Safety Report 14194214 (Version 1)
Quarter: 2017Q4

REPORT INFORMATION
  Report Type: Spontaneous
  Country: US (occurrence: US)
  Receive Date: 20171116
  Receipt Date: 20171116
  Transmission Date: 20180321
  Serious: No
  Sender: FDA-Public Use
  Company Number: US-PFIZER INC-2017484650

PATIENT
  Age: 69 Year
  Sex: Female

DRUGS (3)
  1. EVEROLIMUS. [Suspect]
     Active Substance: EVEROLIMUS
     Dosage: UNK
     Dates: end: 20170716
  2. EXEMESTANE. [Suspect]
     Active Substance: EXEMESTANE
     Dosage: UNK
     Dates: end: 20170716
  3. PALBOCICLIB [Suspect]
     Active Substance: PALBOCICLIB
     Dosage: UNK
     Dates: end: 20170716

REACTIONS (10)
  - Pneumonitis [Unknown]
  - Neutrophil count abnormal [Unknown]
  - Dysgeusia [Not Recovered/Not Resolved]
  - Pyrexia [Unknown]
  - Disease progression [Unknown]
  - Dyspnoea [Not Recovered/Not Resolved]
  - Stomatitis [Unknown]
  - Fatigue [Unknown]
  - Hepatic lesion [Unknown]
  - Cough [Not Recovered/Not Resolved]
